FAERS Safety Report 16212494 (Version 2)
Quarter: 2019Q2

REPORT INFORMATION
  Report Type: Spontaneous
  Country: BR (occurrence: BR)
  Receive Date: 20190418
  Receipt Date: 20190618
  Transmission Date: 20190711
  Serious: Yes (Other)
  Sender: FDA-Public Use
  Company Number: BR-ABBVIE-19P-020-2750737-00

PATIENT
  Age: 17 Year
  Sex: Male
  Weight: 63 kg

DRUGS (6)
  1. IBUPROFEN. [Concomitant]
     Active Substance: IBUPROFEN
     Indication: PYREXIA
     Route: 048
  2. KLARICID UD [Suspect]
     Active Substance: CLARITHROMYCIN
     Indication: TONSILLITIS
  3. KLARICID UD [Suspect]
     Active Substance: CLARITHROMYCIN
     Indication: LARYNGEAL DISORDER
     Dosage: TREATMENT PRESCRIBED FOR 7 DAYS; SUSPENDED AFTER SECOND DOSAGE DAILY DOSE - 1 TAB = 500MG
     Route: 048
     Dates: start: 20190412
  4. PENICILLIN [Suspect]
     Active Substance: PENICILLIN
     Indication: PRODUCT USED FOR UNKNOWN INDICATION
     Dosage: ADMINISTERED IN EMERGENCY ROOM
     Route: 065
  5. ADIPEPT [Concomitant]
     Indication: GASTRITIS
     Route: 048
  6. KLARICID UD [Suspect]
     Active Substance: CLARITHROMYCIN
     Indication: PHARYNGITIS

REACTIONS (6)
  - Drug hypersensitivity [Recovered/Resolved]
  - Skin discolouration [Recovered/Resolved]
  - Erythema [Recovered/Resolved]
  - Swollen tongue [Recovered/Resolved]
  - Hypersensitivity [Recovered/Resolved]
  - Generalised erythema [Recovered/Resolved]

NARRATIVE: CASE EVENT DATE: 20190412
